FAERS Safety Report 7111514-8 (Version None)
Quarter: 2010Q4

REPORT INFORMATION
  Report Type: 
  Country: None (occurrence: None)
  Receive Date: 20101118
  Receipt Date: 20101109
  Transmission Date: 20110411
  Serious: Yes (Other)
  Sender: FDA-Public Use
  Company Number: CHPA2010US17621

PATIENT
  Age: 66 Year
  Sex: Female

DRUGS (2)
  1. VOLTAREN [Suspect]
     Indication: PAIN
     Dosage: SMALL AMOUNT, TID
     Route: 061
     Dates: end: 20101107
  2. VOLTAREN [Suspect]
     Dosage: UNK, UNK
     Route: 061
     Dates: start: 20101109

REACTIONS (4)
  - FEELING COLD [None]
  - OFF LABEL USE [None]
  - SURGERY [None]
  - WRONG TECHNIQUE IN DRUG USAGE PROCESS [None]
